FAERS Safety Report 13883030 (Version 9)
Quarter: 2020Q4

REPORT INFORMATION
  Report Type: Spontaneous
  Country: PL (occurrence: PL)
  Receive Date: 20170818
  Receipt Date: 20201120
  Transmission Date: 20210113
  Serious: Yes (Hospitalization, Other)
  Sender: FDA-Public Use
  Company Number: PL-MYLANLABS-2017M1050553

PATIENT
  Age: 59 Year
  Sex: Male

DRUGS (13)
  1. RITONAVIR. [Interacting]
     Active Substance: RITONAVIR
     Indication: CHRONIC HEPATITIS C
     Dosage: UNK
  2. ZOFENOPRIL [Concomitant]
     Active Substance: ZOFENOPRIL
     Indication: PRODUCT USED FOR UNKNOWN INDICATION
     Dosage: UNK, TAKEN MORE THAN YEAR
  3. PARITAPREVIR [Interacting]
     Active Substance: PARITAPREVIR
     Indication: CHRONIC HEPATITIS C
     Dosage: UNK
     Route: 048
  4. VIEKIRAX [Concomitant]
     Active Substance: OMBITASVIR\PARITAPREVIR\RITONAVIR
     Indication: CHRONIC HEPATITIS C
     Dosage: UNK
  5. OMBITASVIR [Interacting]
     Active Substance: OMBITASVIR
     Indication: CHRONIC HEPATITIS C
     Dosage: UNK
     Route: 048
  6. METOPROLOL. [Interacting]
     Active Substance: METOPROLOL
     Indication: PRODUCT USED FOR UNKNOWN INDICATION
     Dosage: UNK, TAKEN MORE THAN YEAR
  7. DASABUVIR [Interacting]
     Active Substance: DASABUVIR
     Indication: CHRONIC HEPATITIS C
     Dosage: UNK, MEDICATION TAKEN FROM 4 WEEKS BEFORE ADMISSION TO THE HOSPITAL
     Route: 048
  8. EXVIERA                            /08341301/ [Concomitant]
     Active Substance: DASABUVIR
     Indication: CHRONIC HEPATITIS C
     Dosage: UNK
  9. AMLODIPIN                          /00972401/ [Concomitant]
     Active Substance: AMLODIPINE BESYLATE
     Indication: PRODUCT USED FOR UNKNOWN INDICATION
     Dosage: 5 MILLIGRAM
  10. ACETYLSALICYLIC ACID [Concomitant]
     Active Substance: ASPIRIN
     Indication: PRODUCT USED FOR UNKNOWN INDICATION
     Dosage: UNK
  11. ATORVASTATIN [Suspect]
     Active Substance: ATORVASTATIN
     Indication: CARDIAC DISORDER
     Dosage: UNK UNK, Q3W,MEDICATION TAKEN FROM 3 WEEKS BEFORE ADMISSION TO THE HOSPITAL
     Route: 048
  12. CORATOR [Interacting]
     Active Substance: ATORVASTATIN CALCIUM
     Indication: PRODUCT USED FOR UNKNOWN INDICATION
  13. LERCANIDIPINE [Concomitant]
     Active Substance: LERCANIDIPINE
     Indication: HYPERTENSION
     Dosage: UNK UNK, Q3W, MEDICATION TAKEN FROM 3 WEEKS BEFORE ADMISSION TO THE HOSPITAL
     Route: 048

REACTIONS (12)
  - Alanine aminotransferase increased [Recovered/Resolved]
  - Fatigue [Recovered/Resolved]
  - Nausea [Recovered/Resolved]
  - Abdominal pain [Recovered/Resolved]
  - Drug interaction [Recovered/Resolved]
  - Cholelithiasis [Recovered/Resolved]
  - Aspartate aminotransferase increased [Unknown]
  - Splenomegaly [Recovered/Resolved]
  - Abdominal pain upper [Recovered/Resolved]
  - Blood pressure inadequately controlled [Recovered/Resolved]
  - Hepatotoxicity [Recovered/Resolved]
  - Dyspepsia [Recovered/Resolved]
